FAERS Safety Report 16748044 (Version 1)
Quarter: 2019Q3

REPORT INFORMATION
  Report Type: Report from Study
  Country: US (occurrence: US)
  Receive Date: 20190827
  Receipt Date: 20190827
  Transmission Date: 20191005
  Serious: No
  Sender: FDA-Public Use
  Company Number: US-INCYTE CORPORATION-2019IN007914

PATIENT

DRUGS (4)
  1. JAKAFI [Suspect]
     Active Substance: RUXOLITINIB
     Indication: HYPERTENSION
  2. JAKAFI [Suspect]
     Active Substance: RUXOLITINIB
     Indication: WHITE BLOOD CELL DISORDER
     Dosage: 15 MILLIGRAM, QD
     Route: 048
     Dates: start: 2018
  3. JAKAFI [Suspect]
     Active Substance: RUXOLITINIB
     Indication: BLOOD VISCOSITY INCREASED
  4. ASPIRIN                            /00002701/ [Concomitant]
     Active Substance: ASPIRIN
     Indication: PRODUCT USED FOR UNKNOWN INDICATION
     Dosage: UNK, QD
     Route: 065

REACTIONS (4)
  - Rheumatic disorder [Unknown]
  - Arthropathy [Unknown]
  - Off label use [Unknown]
  - Arthralgia [Unknown]
